FAERS Safety Report 4441138-2 (Version None)
Quarter: 2004Q3

REPORT INFORMATION
  Report Type: 
  Country: None (occurrence: None)
  Receive Date: 20040728
  Receipt Date: 20040518
  Transmission Date: 20050211
  Serious: No
  Sender: FDA-Public Use
  Company Number: USA040567884

PATIENT
  Age: 11 Year
  Sex: Female

DRUGS (2)
  1. STRATTERA [Suspect]
     Dosage: 40 MG DAY
  2. CONCERTA [Concomitant]

REACTIONS (2)
  - BRADYPHRENIA [None]
  - DYSARTHRIA [None]
